FAERS Safety Report 4479084-0 (Version None)
Quarter: 2004Q4

REPORT INFORMATION
  Report Type: 
  Country: None (occurrence: None)
  Receive Date: 20040923
  Receipt Date: 20040629
  Transmission Date: 20050328
  Serious: No
  Sender: FDA-Public Use
  Company Number: 207545

PATIENT
  Sex: Male

DRUGS (5)
  1. AVASTIN [Suspect]
     Indication: MALIGNANT MELANOMA
     Dosage: 500 MG, QW2, INTRAVENOUS; 300  MG, QW2, INTRAVENOUS
     Route: 042
     Dates: start: 20040421
  2. AVASTIN [Suspect]
     Indication: MALIGNANT MELANOMA
     Dosage: 500 MG, QW2, INTRAVENOUS; 300  MG, QW2, INTRAVENOUS
     Route: 042
     Dates: start: 20040630
  3. NAVELBINE [Concomitant]
  4. INTERFERON (INTERFERON) [Concomitant]
  5. COUMADIN [Concomitant]

REACTIONS (1)
  - DYSPNOEA EXERTIONAL [None]
